FAERS Safety Report 8762434 (Version 2)
Quarter: 2012Q4

REPORT INFORMATION
  Report Type: 
  Country: US (occurrence: US)
  Receive Date: 20120830
  Receipt Date: 20121004
  Transmission Date: 20130627
  Serious: No
  Sender: FDA-Public Use
  Company Number: US-PFIZER INC-2012210263

PATIENT
  Age: 51 Year
  Sex: Female

DRUGS (1)
  1. MORPHINE SULFATE [Suspect]
     Dosage: UNK

REACTIONS (3)
  - Drug hypersensitivity [Unknown]
  - Allergy to animal [Unknown]
  - Food allergy [Unknown]
